FAERS Safety Report 6427521-4 (Version None)
Quarter: 2009Q4

REPORT INFORMATION
  Report Type: 
  Country: None (occurrence: None)
  Receive Date: 20091104
  Receipt Date: 20091027
  Transmission Date: 20100525
  Serious: Yes (Hospitalization)
  Sender: FDA-Public Use
  Company Number: PHHO2009JP07533

PATIENT
  Sex: Male
  Weight: 57 kg

DRUGS (16)
  1. MYCOPHENOLATE MOFETIL [Suspect]
     Indication: RENAL TRANSPLANT
     Dosage: 2000 MG/DAY
     Route: 048
     Dates: start: 20090409, end: 20091026
  2. MYCOPHENOLATE MOFETIL [Suspect]
     Dosage: 1000 MG/DAY
     Route: 048
     Dates: start: 20091027
  3. NEORAL [Suspect]
     Indication: RENAL TRANSPLANT
     Dosage: 175 MG/DAY
     Route: 048
  4. VOLTAREN [Suspect]
     Indication: BACK PAIN
     Dosage: 4 DF /DAY
     Route: 048
     Dates: start: 20090530, end: 20090615
  5. MEDROL [Suspect]
     Indication: RENAL TRANSPLANT
     Dosage: 4 MG/DAY
     Route: 048
  6. SIMULECT [Concomitant]
     Indication: RENAL TRANSPLANT
     Dosage: 20 MG, UNK
     Route: 042
     Dates: start: 20090408, end: 20090408
  7. TAGAMET [Concomitant]
  8. CALSLOT [Concomitant]
  9. URINORM [Concomitant]
  10. BAKTAR [Concomitant]
  11. ZOVIRAX [Concomitant]
  12. SOLITA T [Concomitant]
  13. CEFAMEZIN [Concomitant]
  14. PROCAINAMIDE HCL [Concomitant]
  15. ISODINE [Concomitant]
  16. HIBITANE [Concomitant]

REACTIONS (2)
  - BLOOD CREATININE INCREASED [None]
  - CYTOMEGALOVIRUS INFECTION [None]
